FAERS Safety Report 16414459 (Version 1)
Quarter: 2019Q3

REPORT INFORMATION
  Report Type: Spontaneous
  Country: US (occurrence: US)
  Receive Date: 20190610
  Receipt Date: 20190610
  Transmission Date: 20191004
  Serious: Yes (Disabling)
  Sender: FDA-Public Use
  Company Number: None

PATIENT
  Age: 69 Year
  Sex: Female
  Weight: 85.5 kg

DRUGS (10)
  1. DUPIXENT [Suspect]
     Active Substance: DUPILUMAB
     Indication: ASTHMA
     Dosage: ?          QUANTITY:2 INJECTION(S);OTHER FREQUENCY:EVERY 2 WEEKS;?
     Route: 030
     Dates: start: 20190509, end: 20190523
  2. CLONAZEPAM. [Concomitant]
     Active Substance: CLONAZEPAM
  3. POTASSIUM [Concomitant]
     Active Substance: POTASSIUM
  4. FLUOXETINE [Concomitant]
     Active Substance: FLUOXETINE HYDROCHLORIDE
  5. MULTIPLE VITAMIN [Concomitant]
     Active Substance: VITAMINS
  6. SYNTHROID [Concomitant]
     Active Substance: LEVOTHYROXINE SODIUM
  7. BREO ELLIPTA [Concomitant]
     Active Substance: FLUTICASONE FUROATE\VILANTEROL TRIFENATATE
  8. VENTOLIN [Concomitant]
     Active Substance: ALBUTEROL SULFATE
  9. SIMVASTATIN. [Concomitant]
     Active Substance: SIMVASTATIN
  10. ARIPIPRAZOLE. [Concomitant]
     Active Substance: ARIPIPRAZOLE

REACTIONS (1)
  - Asthma [None]

NARRATIVE: CASE EVENT DATE: 20190509
